FAERS Safety Report 22089861 (Version 1)
Quarter: 2023Q1

REPORT INFORMATION
  Report Type: Spontaneous
  Country: US (occurrence: None)
  Receive Date: 20230311
  Receipt Date: 20230311
  Transmission Date: 20230418
  Serious: Yes (Death)
  Sender: FDA-Public Use
  Company Number: None

PATIENT
  Age: 74 Year
  Sex: Male

DRUGS (1)
  1. OFEV [Suspect]
     Active Substance: NINTEDANIB
     Indication: Idiopathic pulmonary fibrosis
     Dosage: FREQUENCY : TWICE A DAY;?
     Route: 048
     Dates: start: 20220103, end: 20221203

REACTIONS (4)
  - Septic shock [None]
  - Interstitial lung disease [None]
  - Oxygen saturation decreased [None]
  - Condition aggravated [None]

NARRATIVE: CASE EVENT DATE: 20221203
